FAERS Safety Report 22961991 (Version 2)
Quarter: 2023Q4

REPORT INFORMATION
  Report Type: Report from Study
  Country: CA (occurrence: CA)
  Receive Date: 20230920
  Receipt Date: 20231106
  Transmission Date: 20240110
  Serious: Yes (Other)
  Sender: FDA-Public Use
  Company Number: CA-BRISTOL-MYERS SQUIBB COMPANY-2023-116817

PATIENT
  Age: 62 Year
  Sex: Male

DRUGS (3)
  1. ZEPOSIA [Suspect]
     Active Substance: OZANIMOD HYDROCHLORIDE
     Indication: Colitis ulcerative
     Route: 048
     Dates: start: 20230812, end: 20231009
  2. ROSUVASTATIN [Concomitant]
     Active Substance: ROSUVASTATIN
     Indication: Product used for unknown indication
  3. LAMOTRIGINE [Concomitant]
     Active Substance: LAMOTRIGINE
     Indication: Product used for unknown indication

REACTIONS (6)
  - Bowel movement irregularity [Unknown]
  - Dysuria [Unknown]
  - Fatigue [Not Recovered/Not Resolved]
  - Haematochezia [Not Recovered/Not Resolved]
  - Prostate cancer [Not Recovered/Not Resolved]
  - Drug ineffective [Not Recovered/Not Resolved]
